FAERS Safety Report 20355415 (Version 2)
Quarter: 2022Q1

REPORT INFORMATION
  Report Type: Spontaneous
  Country: US (occurrence: US)
  Receive Date: 20220120
  Receipt Date: 20220128
  Transmission Date: 20220424
  Serious: Yes (Other)
  Sender: FDA-Public Use
  Company Number: US-PFIZER INC-202200054578

PATIENT
  Age: 57 Year
  Sex: Female
  Weight: 74.8 kg

DRUGS (3)
  1. SILDENAFIL CITRATE [Suspect]
     Active Substance: SILDENAFIL CITRATE
     Dosage: UNK
  2. REMODULIN [Suspect]
     Active Substance: TREPROSTINIL
     Indication: Pulmonary arterial hypertension
     Dosage: 0.090 UG/KG
     Route: 042
  3. AMBRISENTAN EG [Concomitant]
     Dosage: UNK

REACTIONS (3)
  - Deafness unilateral [Unknown]
  - Ear discomfort [Unknown]
  - Ear congestion [Unknown]
